FAERS Safety Report 24310409 (Version 1)
Quarter: 2024Q3

REPORT INFORMATION
  Report Type: Spontaneous
  Country: US (occurrence: US)
  Receive Date: 20240912
  Receipt Date: 20240912
  Transmission Date: 20241017
  Serious: No
  Sender: SANOFI AVENTIS
  Company Number: US-SA-2024SA262956

PATIENT
  Age: 18 Year
  Sex: Male
  Weight: 54.55 kg

DRUGS (3)
  1. DUPIXENT [Suspect]
     Active Substance: DUPILUMAB
     Indication: Dermatitis atopic
     Dosage: 300 MG, QOW
     Route: 058
  2. RINVOQ [Suspect]
     Active Substance: UPADACITINIB
  3. ADBRY [Suspect]
     Active Substance: TRALOKINUMAB-LDRM

REACTIONS (3)
  - Eye inflammation [Unknown]
  - Infection [Unknown]
  - Nasal operation [Unknown]

NARRATIVE: CASE EVENT DATE: 20240819
